FAERS Safety Report 14227267 (Version 5)
Quarter: 2022Q2

REPORT INFORMATION
  Report Type: Spontaneous
  Country: US (occurrence: US)
  Receive Date: 20171127
  Receipt Date: 20220420
  Transmission Date: 20220721
  Serious: No
  Sender: FDA-Public Use
  Company Number: US-PFIZER INC-2017508294

PATIENT
  Age: 64 Year
  Sex: Female

DRUGS (7)
  1. DOCETAXEL [Suspect]
     Active Substance: DOCETAXEL
     Indication: Breast cancer female
     Dosage: 75 MG, CYCLIC (6 CYCLES, EVERY THREE WEEKS)
     Dates: start: 20110323, end: 20110706
  2. DOCETAXEL [Suspect]
     Active Substance: DOCETAXEL
     Dosage: UNK
     Dates: start: 201104, end: 201105
  3. DOCETAXEL [Suspect]
     Active Substance: DOCETAXEL
     Dosage: UNK
     Dates: start: 201104, end: 201105
  4. TAXOTERE [Suspect]
     Active Substance: DOCETAXEL
     Indication: Breast cancer female
     Dosage: 75 MG, CYCLIC (SIX CYCLES, EVERY THREE WEEKS)
     Dates: start: 20110323, end: 20110706
  5. TAXOTERE [Suspect]
     Active Substance: DOCETAXEL
     Dosage: UNK
     Dates: start: 201104, end: 201105
  6. CARBOPLATIN [Concomitant]
     Active Substance: CARBOPLATIN
     Indication: Chemotherapy
     Dosage: UNK
  7. LEVOTHYROXINE [Concomitant]
     Active Substance: LEVOTHYROXINE
     Dosage: UNK

REACTIONS (1)
  - Alopecia [Not Recovered/Not Resolved]

NARRATIVE: CASE EVENT DATE: 20110301
